FAERS Safety Report 17803042 (Version 1)
Quarter: 2020Q2

REPORT INFORMATION
  Report Type: Other
  Country: FR (occurrence: FR)
  Receive Date: 20200519
  Receipt Date: 20200519
  Transmission Date: 20200714
  Serious: Yes (Hospitalization, Other)
  Sender: FDA-Public Use
  Company Number: FR-APOTEX-2020AP011007

PATIENT
  Age: 32 Year
  Sex: Male

DRUGS (2)
  1. DEROXAT [Suspect]
     Active Substance: PAROXETINE HYDROCHLORIDE
     Indication: INTENTIONAL OVERDOSE
     Dosage: 60 DF, SINGLE
     Route: 048
     Dates: start: 20200326, end: 20200326
  2. ABILIFY [Suspect]
     Active Substance: ARIPIPRAZOLE
     Indication: INTENTIONAL OVERDOSE
     Dosage: 40 DF, SINGLE
     Route: 048
     Dates: start: 20200326, end: 20200326

REACTIONS (2)
  - Poisoning deliberate [Recovered/Resolved]
  - Electrocardiogram QT prolonged [Recovered/Resolved]

NARRATIVE: CASE EVENT DATE: 20200326
